FAERS Safety Report 10838569 (Version 1)
Quarter: 2015Q1

REPORT INFORMATION
  Report Type: Report from Study
  Country: US (occurrence: US)
  Receive Date: 20150219
  Receipt Date: 20150219
  Transmission Date: 20150721
  Serious: No
  Sender: FDA-Public Use
  Company Number: US-ABBVIE-14P-163-1228058-00

PATIENT
  Age: 60 Year
  Sex: Male
  Weight: 109.87 kg

DRUGS (2)
  1. PLAQUENIL [Concomitant]
     Active Substance: HYDROXYCHLOROQUINE SULFATE
     Indication: RHEUMATOID ARTHRITIS
     Dates: start: 201312
  2. HUMIRA [Suspect]
     Active Substance: ADALIMUMAB
     Indication: RHEUMATOID ARTHRITIS
     Route: 058
     Dates: start: 20140214

REACTIONS (2)
  - Drug effect decreased [Not Recovered/Not Resolved]
  - Toothache [Recovered/Resolved]

NARRATIVE: CASE EVENT DATE: 201402
